FAERS Safety Report 9286729 (Version 1)
Quarter: 2013Q2

REPORT INFORMATION
  Report Type: Spontaneous
  Country: FR (occurrence: FR)
  Receive Date: 20130513
  Receipt Date: 20130513
  Transmission Date: 20140414
  Serious: Yes (Hospitalization, Other)
  Sender: FDA-Public Use
  Company Number: FR-PFIZER INC-2013142566

PATIENT
  Age: 83 Year
  Sex: Female

DRUGS (6)
  1. TAHOR [Suspect]
     Dosage: 40 MG, 1X/DAY
     Route: 048
     Dates: start: 2005, end: 20130326
  2. AMIODARONE [Concomitant]
     Dosage: UNK
  3. LEVOTHYROX [Concomitant]
     Dosage: UNK
  4. ZYLORIC [Concomitant]
     Dosage: UNK
  5. INEXIUM [Concomitant]
     Dosage: UNK
  6. AMLOR [Concomitant]
     Dosage: UNK

REACTIONS (7)
  - Blood creatine phosphokinase increased [Recovered/Resolved]
  - Respiratory failure [Unknown]
  - VIIth nerve paralysis [Unknown]
  - Renal failure [Unknown]
  - Diabetic nephropathy [Unknown]
  - Myalgia [Unknown]
  - Rhabdomyolysis [Unknown]
